FAERS Safety Report 17262190 (Version 1)
Quarter: 2020Q1

REPORT INFORMATION
  Report Type: Spontaneous
  Country: US (occurrence: US)
  Receive Date: 20200110
  Receipt Date: 20200110
  Transmission Date: 20200409
  Serious: Yes (Other)
  Sender: FDA-Public Use
  Company Number: None

PATIENT
  Age: 56 Year
  Sex: Female
  Weight: 89.55 kg

DRUGS (1)
  1. MENTHOLATUM DEEP HEATING RUB EXTRA STRENGTH [Suspect]
     Active Substance: MENTHOL\METHYL SALICYLATE
     Indication: MYALGIA
     Dosage: ?          QUANTITY:1 TOPICAL;?
     Route: 061
     Dates: start: 20200106, end: 20200107

REACTIONS (1)
  - Second degree chemical burn of skin [None]

NARRATIVE: CASE EVENT DATE: 20200106
